FAERS Safety Report 7601644-6 (Version None)
Quarter: 2011Q3

REPORT INFORMATION
  Report Type: 
  Country: None (occurrence: None)
  Receive Date: 20110711
  Receipt Date: 20110705
  Transmission Date: 20111222
  Serious: Yes (Death, Hospitalization)
  Sender: FDA-Public Use
  Company Number: CA-BRISTOL-MYERS SQUIBB COMPANY-15643505

PATIENT
  Age: 40 Year
  Sex: Female

DRUGS (7)
  1. ABILIFY [Suspect]
     Indication: DEPRESSION
     Route: 048
     Dates: start: 20110222
  2. CONCERTA [Suspect]
  3. CYMBALTA [Suspect]
  4. PROZAC [Suspect]
  5. ASACOL [Suspect]
  6. ABILIFY [Suspect]
     Indication: BIPOLAR II DISORDER
     Route: 048
     Dates: start: 20110222
  7. TOPAMAX [Suspect]

REACTIONS (3)
  - CARDIAC ARREST [None]
  - HYPOXIC-ISCHAEMIC ENCEPHALOPATHY [None]
  - LEFT VENTRICULAR DYSFUNCTION [None]
